FAERS Safety Report 10045966 (Version 2)
Quarter: 2014Q1

REPORT INFORMATION
  Report Type: Spontaneous
  Country: US (occurrence: US)
  Receive Date: 20140330
  Receipt Date: 20140330
  Transmission Date: 20141002
  Serious: Yes (Disabling)
  Sender: FDA-Public Use
  Company Number: US-GE HEALTHCARE MEDICAL DIAGNOSTICS-OSCN-PR-0906S-0312

PATIENT
  Sex: Female

DRUGS (12)
  1. OMNISCAN [Suspect]
     Indication: PRODUCT USED FOR UNKNOWN INDICATION
     Route: 042
     Dates: start: 19970422, end: 19970422
  2. OMNISCAN [Suspect]
     Indication: PRODUCT USED FOR UNKNOWN INDICATION
     Route: 042
     Dates: start: 19990217, end: 19990217
  3. OMNISCAN [Suspect]
     Indication: PRODUCT USED FOR UNKNOWN INDICATION
     Route: 042
     Dates: start: 20011206, end: 20011206
  4. OMNISCAN [Suspect]
     Indication: HAEMORRHAGE
     Route: 042
     Dates: start: 20020528, end: 20020528
  5. OMNISCAN [Suspect]
     Indication: HAEMORRHAGE
     Route: 042
     Dates: start: 20020713, end: 20020713
  6. OMNISCAN [Suspect]
     Indication: HAEMANGIOBLASTOMA
     Route: 042
     Dates: start: 20020723, end: 20020723
  7. OMNISCAN [Suspect]
     Indication: HAEMORRHAGE
     Route: 042
     Dates: start: 20020827, end: 20020827
  8. OMNISCAN [Suspect]
     Indication: VON HIPPEL-LINDAU DISEASE
     Route: 042
     Dates: start: 20041008, end: 20041008
  9. GADOLINIUM (UNSPECIFIED) [Suspect]
     Indication: PRODUCT USED FOR UNKNOWN INDICATION
     Route: 042
     Dates: start: 19971224, end: 19971224
  10. GADOLINIUM (UNSPECIFIED) [Suspect]
     Indication: PRODUCT USED FOR UNKNOWN INDICATION
     Route: 042
     Dates: start: 19980113, end: 19980113
  11. GADOLINIUM (UNSPECIFIED) [Suspect]
     Indication: PRODUCT USED FOR UNKNOWN INDICATION
     Route: 042
     Dates: start: 20000508, end: 20000508
  12. GADOLINIUM (UNSPECIFIED) [Suspect]
     Indication: PRODUCT USED FOR UNKNOWN INDICATION
     Route: 042
     Dates: start: 20021112, end: 20021112

REACTIONS (1)
  - Nephrogenic systemic fibrosis [Not Recovered/Not Resolved]
